FAERS Safety Report 8906891 (Version 1)
Quarter: 2012Q4

REPORT INFORMATION
  Report Type: 
  Country: US (occurrence: US)
  Receive Date: 20121113
  Receipt Date: 20121113
  Transmission Date: 20130627
  Serious: No
  Sender: FDA-Public Use
  Company Number: US-AMGEN-USASP2012010777

PATIENT
  Age: 70 Year
  Sex: Female
  Weight: 90.7 kg

DRUGS (5)
  1. ENBREL [Suspect]
     Indication: PRODUCT USED FOR UNKNOWN INDICATION
     Dosage: 25 mg, 2 times/wk
  2. CELEBREX [Concomitant]
     Dosage: UNK
  3. PANTOPRAZOLE [Concomitant]
     Dosage: 20 mg, UNK
  4. FLUOXETINE [Concomitant]
     Dosage: 40 mg, UNK
  5. ALPRAZOLAM [Concomitant]
     Dosage: 2 mg, UNK

REACTIONS (1)
  - Skin hypertrophy [Unknown]
